FAERS Safety Report 10725308 (Version 1)
Quarter: 2015Q1

REPORT INFORMATION
  Report Type: Spontaneous
  Country: US (occurrence: US)
  Receive Date: 20150120
  Receipt Date: 20150120
  Transmission Date: 20150721
  Serious: Yes (Hospitalization)
  Sender: FDA-Public Use
  Company Number: US-ASTRAZENECA-2015SE04412

PATIENT
  Age: 22 Week
  Sex: Female

DRUGS (1)
  1. SYNAGIS [Suspect]
     Active Substance: PALIVIZUMAB
     Route: 030
     Dates: start: 20141217, end: 20141222

REACTIONS (3)
  - Pneumonia aspiration [Unknown]
  - Respiratory failure [Unknown]
  - Viral infection [Unknown]

NARRATIVE: CASE EVENT DATE: 20150112
